FAERS Safety Report 6239362-1 (Version None)
Quarter: 2009Q2

REPORT INFORMATION
  Report Type: 
  Country: None (occurrence: None)
  Receive Date: 20090618
  Receipt Date: 20090618
  Transmission Date: 20091009
  Serious: Yes (Other)
  Sender: FDA-Public Use
  Company Number: None

PATIENT
  Sex: Male
  Weight: 72.5755 kg

DRUGS (1)
  1. ZICAM NASAL SPRAY UNKNOWN  ZICAM [Suspect]
     Indication: NASOPHARYNGITIS
     Dosage: ONE SPRAY ONE TIME NASAL (USED ONE TIME ONLY)
     Route: 045
     Dates: start: 20050101, end: 20050101

REACTIONS (3)
  - ANOSMIA [None]
  - DYSGEUSIA [None]
  - RHINALGIA [None]
